FAERS Safety Report 11723805 (Version 3)
Quarter: 2016Q1

REPORT INFORMATION
  Report Type: Spontaneous
  Country: US (occurrence: US)
  Receive Date: 20151111
  Receipt Date: 20160127
  Transmission Date: 20160525
  Serious: Yes (Hospitalization, Other)
  Sender: FDA-Public Use
  Company Number: US-MYLANLABS-2015M1038353

PATIENT

DRUGS (3)
  1. HEPARIN [Concomitant]
     Active Substance: HEPARIN SODIUM
     Indication: THROMBOSIS PROPHYLAXIS
     Route: 065
  2. VANCOMYCIN [Suspect]
     Active Substance: VANCOMYCIN
     Indication: WOUND INFECTION
     Dosage: 1.5, 1.5, 1.5, 1.25, 1.25, 1.25, 0.75, 0.75, AND 0.75 GRAMS
     Route: 065
  3. PIPERACILLIN/TAZOBACTAM [Suspect]
     Active Substance: PIPERACILLIN SODIUM\TAZOBACTAM SODIUM
     Indication: WOUND INFECTION
     Route: 065

REACTIONS (4)
  - Disseminated intravascular coagulation [None]
  - Immune thrombocytopenic purpura [Recovering/Resolving]
  - Gastrointestinal haemorrhage [Unknown]
  - Procedural complication [None]

NARRATIVE: CASE EVENT DATE: 201401
